FAERS Safety Report 4321039-0 (Version None)
Quarter: 2004Q1

REPORT INFORMATION
  Report Type: 
  Country: None (occurrence: None)
  Receive Date: 20040322
  Receipt Date: 20040315
  Transmission Date: 20041129
  Serious: Yes (Death)
  Sender: FDA-Public Use
  Company Number: PHRM2004FR01195

PATIENT
  Age: 79 Year
  Sex: Female

DRUGS (1)
  1. GLEEVEC [Suspect]
     Indication: CHRONIC MYELOID LEUKAEMIA
     Dosage: 400 MG DAILY
     Route: 048
     Dates: start: 20040211, end: 20040229

REACTIONS (3)
  - ACUTE PULMONARY OEDEMA [None]
  - ISCHAEMIC CARDIOMYOPATHY [None]
  - OEDEMA PERIPHERAL [None]
